FAERS Safety Report 16332644 (Version 2)
Quarter: 2019Q2

REPORT INFORMATION
  Report Type: Spontaneous
  Country: US (occurrence: US)
  Receive Date: 20190520
  Receipt Date: 20190618
  Transmission Date: 20190711
  Serious: No
  Sender: FDA-Public Use
  Company Number: US-PFIZER INC-2019210523

PATIENT
  Age: 50 Year
  Sex: Male
  Weight: 105.6 kg

DRUGS (1)
  1. CHANTIX [Suspect]
     Active Substance: VARENICLINE TARTRATE
     Indication: SMOKING CESSATION THERAPY
     Dosage: UNK
     Dates: start: 1999

REACTIONS (3)
  - Sleep disorder [Recovering/Resolving]
  - Memory impairment [Unknown]
  - Screaming [Recovering/Resolving]

NARRATIVE: CASE EVENT DATE: 1999
